FAERS Safety Report 7085072-0 (Version None)
Quarter: 2010Q4

REPORT INFORMATION
  Report Type: 
  Country: None (occurrence: None)
  Receive Date: 20101026
  Receipt Date: 20101012
  Transmission Date: 20110411
  Serious: Yes (Other)
  Sender: FDA-Public Use
  Company Number: DSU-2010-05442

PATIENT
  Age: 78 Year
  Sex: Female
  Weight: 74.8435 kg

DRUGS (10)
  1. AZOR [Suspect]
     Indication: HYPERTENSION
     Dosage: 10/40 MG (BID), PER ORAL; 10/40 MG (HALF OF A 10/40MG TABLET BID), PER ORAL
     Route: 048
     Dates: start: 20100301, end: 20100401
  2. AZOR [Suspect]
     Indication: HYPERTENSION
     Dosage: 10/40 MG (BID), PER ORAL; 10/40 MG (HALF OF A 10/40MG TABLET BID), PER ORAL
     Route: 048
     Dates: start: 20100401
  3. TRILIPIX (CHOLINE FENOFIBRATE) (CHOLINE FENOFIBRATE) [Concomitant]
  4. PLAVIX (CLOPIDOGREL) (CLOPIDOGREL) [Concomitant]
  5. LASIX [Concomitant]
  6. SINEMET (LEVODOPA, CARBIDOPA) (LEVODOPA, CARBIDOPA) [Concomitant]
  7. METFORMIN HCL [Concomitant]
  8. CLONAZEPAM (CLONAZEPAM) (1 MILLIGRAM) (CLONAZEPAM) [Concomitant]
  9. ZIAC (HYDROCHLOROTHIAZIDE, BISOPROLOL FUMARATE) (HYDROCHLOROTHIAZIDE, [Concomitant]
  10. GLIMEPIRIDE (GLIMEPIRIDE) (GLIMEPIRIDE) [Concomitant]

REACTIONS (7)
  - BLADDER CANCER [None]
  - CONDITION AGGRAVATED [None]
  - CYSTITIS [None]
  - DRUG ADMINISTRATION ERROR [None]
  - SWELLING [None]
  - TREMOR [None]
  - WRONG TECHNIQUE IN DRUG USAGE PROCESS [None]
